FAERS Safety Report 5261081-9 (Version None)
Quarter: 2007Q1

REPORT INFORMATION
  Report Type: 
  Country: None (occurrence: None)
  Receive Date: 20070309
  Receipt Date: 20070302
  Transmission Date: 20070707
  Serious: Yes (Hospitalization, Other)
  Sender: FDA-Public Use
  Company Number: GB-PFIZER INC-2006088154

PATIENT
  Age: 72 Year
  Sex: Male
  Weight: 88 kg

DRUGS (8)
  1. HYDROCORTISONE ACETATE [Suspect]
     Indication: TUBERCULOSIS
     Route: 048
  2. HYDROCORTISONE ACETATE [Suspect]
     Indication: ADRENAL DISORDER
  3. HYDROCORTISONE ACETATE [Suspect]
     Indication: CARDIAC DISORDER
  4. ASPIRIN [Concomitant]
  5. CLOPIDOGREL BISULFATE [Concomitant]
     Dates: start: 20030301
  6. FLUDROCORTISONE [Concomitant]
  7. LIPITOR [Concomitant]
  8. RAMIPRIL [Concomitant]

REACTIONS (4)
  - FOOD POISONING [None]
  - HYPERGLYCAEMIA [None]
  - MALAISE [None]
  - PYREXIA [None]
